FAERS Safety Report 6614941-8 (Version None)
Quarter: 2010Q1

REPORT INFORMATION
  Report Type: 
  Country: None (occurrence: None)
  Receive Date: 20100305
  Receipt Date: 20100225
  Transmission Date: 20100710
  Serious: Yes (Other)
  Sender: FDA-Public Use
  Company Number: BR-ABBOTT-09P-020-0605352-00

PATIENT
  Sex: Female
  Weight: 76 kg

DRUGS (9)
  1. HUMIRA [Suspect]
     Indication: RHEUMATOID ARTHRITIS
     Route: 058
     Dates: start: 20081202
  2. INSULIN [Concomitant]
     Indication: DIABETES MELLITUS
     Route: 048
     Dates: start: 20070101
  3. CAPTOPRIL [Concomitant]
     Indication: HYPERTENSION
     Route: 048
     Dates: start: 20070101
  4. PREDNISONE [Concomitant]
     Indication: RHEUMATOID ARTHRITIS
     Dosage: EVEN DAYS
     Route: 048
     Dates: start: 19890101
  5. PREDNISONE [Concomitant]
     Indication: PAIN
     Dosage: ODD DAYS
     Route: 048
     Dates: start: 19890101
  6. FOLIC ACID [Concomitant]
     Indication: ANAEMIA
     Route: 048
     Dates: start: 20070101
  7. OMEPRAZOLE [Concomitant]
     Indication: GASTRIC DISORDER
     Route: 048
     Dates: start: 20070101
  8. METFORMIN HCL [Concomitant]
     Indication: BLOOD GLUCOSE
     Route: 048
     Dates: start: 20070101
  9. CIPROFLOXACIN [Concomitant]
     Indication: ANTIBIOTIC PROPHYLAXIS
     Route: 048
     Dates: start: 20091101

REACTIONS (10)
  - ANAEMIA [None]
  - APPLICATION SITE PRURITUS [None]
  - ARTHROPATHY [None]
  - CALCULUS URETHRAL [None]
  - CARTILAGE ATROPHY [None]
  - INJECTION SITE ERYTHEMA [None]
  - MOBILITY DECREASED [None]
  - NEPHROLITHIASIS [None]
  - PAIN IN EXTREMITY [None]
  - WEIGHT DECREASED [None]
